FAERS Safety Report 7418757-4 (Version None)
Quarter: 2011Q2

REPORT INFORMATION
  Report Type: 
  Country: None (occurrence: None)
  Receive Date: 20110415
  Receipt Date: 20110411
  Transmission Date: 20111010
  Serious: Yes (Hospitalization, Other)
  Sender: FDA-Public Use
  Company Number: US-PFIZER INC-2011014287

PATIENT
  Sex: Male

DRUGS (8)
  1. LORCET-HD [Concomitant]
     Indication: ANALGESIC THERAPY
     Dosage: UNK
     Dates: start: 20050101, end: 20090101
  2. PROMETHAZINE HCL AND CODEINE [Concomitant]
     Indication: COUGH
     Dosage: UNK
     Dates: start: 20050101, end: 20090101
  3. FLEXERIL [Concomitant]
     Indication: MUSCLE RELAXANT THERAPY
     Dosage: UNK
     Dates: start: 20050101, end: 20080101
  4. CHANTIX [Suspect]
     Indication: SMOKING CESSATION THERAPY
     Dosage: STARTER PACK AND CONTINUING MONTHLY PACK
     Dates: start: 20071207, end: 20080405
  5. CHANTIX [Suspect]
     Dosage: STARTER PACK AND CONTINUING MONTHLY PACK
     Dates: start: 20091201, end: 20100131
  6. CEPHALEXIN [Concomitant]
     Indication: ANTIBIOTIC THERAPY
     Dosage: UNK
     Dates: start: 20050101, end: 20090101
  7. DARVOCET [Concomitant]
     Indication: ANALGESIC THERAPY
     Dosage: UNK
     Dates: start: 20050101, end: 20090101
  8. ULTRAM [Concomitant]
     Indication: ANALGESIC THERAPY
     Dosage: UNK
     Dates: start: 20060101, end: 20090101

REACTIONS (3)
  - CONVULSION [None]
  - LOSS OF CONSCIOUSNESS [None]
  - NIGHTMARE [None]
